FAERS Safety Report 25288090 (Version 1)
Quarter: 2025Q2

REPORT INFORMATION
  Report Type: Spontaneous
  Country: SE (occurrence: SE)
  Receive Date: 20250509
  Receipt Date: 20250509
  Transmission Date: 20250716
  Serious: Yes (Death, Other)
  Sender: AZURITY PHARMACEUTICALS
  Company Number: SE-AZURITY PHARMACEUTICALS, INC.-AZR202504-001264

PATIENT
  Age: 64 Year
  Sex: Male
  Weight: 57 kg

DRUGS (3)
  1. IVERMECTIN [Suspect]
     Active Substance: IVERMECTIN
     Indication: Strongyloidiasis
     Route: 048
  2. IVERMECTIN [Suspect]
     Active Substance: IVERMECTIN
     Route: 058
  3. PREDNISONE [Concomitant]
     Active Substance: PREDNISONE
     Indication: Giant cell arteritis
     Route: 065

REACTIONS (2)
  - Coma [Fatal]
  - Neurotoxicity [Fatal]
